FAERS Safety Report 4713615-8 (Version None)
Quarter: 2005Q3

REPORT INFORMATION
  Report Type: 
  Country: None (occurrence: None)
  Receive Date: 20050712
  Receipt Date: 20050627
  Transmission Date: 20060218
  Serious: Yes (Hospitalization)
  Sender: FDA-Public Use
  Company Number: GBS050617733

PATIENT
  Age: 60 Year
  Sex: Male
  Weight: 92 kg

DRUGS (10)
  1. FLUOXETINE HCL [Suspect]
     Indication: SLEEP DISORDER
     Dosage: 20 MG/1 DAY
     Dates: start: 20050517, end: 20050522
  2. FRUSEMIDE [Concomitant]
  3. MYCOPHENOLATE MOFETIL [Concomitant]
  4. PREDNISOLONE [Concomitant]
  5. DIAZEPAM [Concomitant]
  6. WARFARIN SODIUM [Concomitant]
  7. SOTALOL HCL [Concomitant]
  8. ALLOPURINOL [Concomitant]
  9. DIGOXIN [Concomitant]
  10. SIROLIMUS [Concomitant]

REACTIONS (3)
  - ASTHENIA [None]
  - COORDINATION ABNORMAL [None]
  - HYPONATRAEMIA [None]
